FAERS Safety Report 16810673 (Version 1)
Quarter: 2019Q4

REPORT INFORMATION
  Report Type: Spontaneous
  Country: US (occurrence: US)
  Receive Date: 20190916
  Receipt Date: 20190916
  Transmission Date: 20200122
  Serious: No
  Sender: FDA-Public Use
  Company Number: None

PATIENT
  Age: 72 Year
  Sex: Female
  Weight: 57.6 kg

DRUGS (1)
  1. XGEVA [Suspect]
     Active Substance: DENOSUMAB
     Indication: RENAL CANCER
     Dosage: 120 MG SUBCUTANEOUS Q 28 DAYS?
     Route: 058
     Dates: start: 20190509, end: 20190916

REACTIONS (1)
  - Hospice care [None]

NARRATIVE: CASE EVENT DATE: 20190916
